FAERS Safety Report 7318356-9 (Version None)
Quarter: 2011Q1

REPORT INFORMATION
  Report Type: 
  Country: None (occurrence: None)
  Receive Date: 20110217
  Receipt Date: 20110217
  Transmission Date: 20110831
  Serious: Yes (Hospitalization)
  Sender: FDA-Public Use
  Company Number: None

PATIENT
  Age: 81 Year
  Sex: Male
  Weight: 86 kg

DRUGS (8)
  1. METOPROLOL SUCCINATE EXTENDED RELEASE [Concomitant]
  2. WARFARIN [Concomitant]
  3. ZYVOX [Suspect]
     Indication: DEVICE RELATED INFECTION
     Dosage: PO
     Route: 048
     Dates: start: 20101121, end: 20110110
  4. AMLODIPINE [Concomitant]
  5. GLIMEPIRIDE [Concomitant]
  6. LEVOTHYROXINE [Concomitant]
  7. ALENDRONATE [Concomitant]
  8. SITAGLIPTIN [Concomitant]

REACTIONS (4)
  - ANAEMIA [None]
  - THROMBOCYTOPENIA [None]
  - BONE MARROW TOXICITY [None]
  - MYOCARDIAL INFARCTION [None]
